FAERS Safety Report 5763830-X (Version None)
Quarter: 2008Q2

REPORT INFORMATION
  Report Type: 
  Country: None (occurrence: None)
  Receive Date: 20080606
  Receipt Date: 20080606
  Transmission Date: 20081010
  Serious: Yes (Death)
  Sender: FDA-Public Use
  Company Number: None

PATIENT
  Age: 51 Year
  Sex: Male

DRUGS (2)
  1. CLOZAPINE [Suspect]
     Indication: SCHIZOPHRENIA, PARANOID TYPE
     Dosage: 100 MG  Q HS PO
     Route: 048
  2. EFFEXOR XR [Suspect]
     Dosage: 375 MG Q AM PO
     Route: 048

REACTIONS (2)
  - FALL [None]
  - MYOCARDIAL INFARCTION [None]
